FAERS Safety Report 14051046 (Version 3)
Quarter: 2018Q2

REPORT INFORMATION
  Report Type: Spontaneous
  Country: US (occurrence: US)
  Receive Date: 20171005
  Receipt Date: 20180406
  Transmission Date: 20180711
  Serious: No
  Sender: FDA-Public Use
  Company Number: US-BAYER-2017-178004

PATIENT
  Sex: Male

DRUGS (1)
  1. KOGENATE FS [Suspect]
     Active Substance: ANTIHEMOPHILIC FACTOR, HUMAN RECOMBINANT
     Indication: IMMUNE THROMBOCYTOPENIC PURPURA
     Dosage: UNK, PROPHYLAXIS

REACTIONS (1)
  - Urticaria [None]

NARRATIVE: CASE EVENT DATE: 201709
